FAERS Safety Report 20360551 (Version 1)
Quarter: 2022Q1

REPORT INFORMATION
  Report Type: Spontaneous
  Country: PL (occurrence: PL)
  Receive Date: 20220121
  Receipt Date: 20220121
  Transmission Date: 20220423
  Serious: Yes (Death, Other)
  Sender: FDA-Public Use
  Company Number: None

PATIENT
  Age: 81 Year
  Sex: Female
  Weight: 70 kg

DRUGS (6)
  1. ENOXAPARIN SODIUM [Suspect]
     Active Substance: ENOXAPARIN SODIUM
     Dosage: 1 DF, QD
     Route: 058
     Dates: start: 20211016, end: 20211103
  2. GLIPIZIDE [Concomitant]
     Active Substance: GLIPIZIDE
     Dosage: 1 DF
  3. MIANSERIN HYDROCHLORIDE [Concomitant]
     Active Substance: MIANSERIN HYDROCHLORIDE
     Dosage: 1 OR 2 TABLETS FOR THE NIGHT FOR PROBLEMS WITH FALLING ASLEEP
  4. CIPRONEX [CIPROFLOXACIN] [Concomitant]
     Indication: Urinary tract infection
  5. INSULIN ASPART [Concomitant]
     Active Substance: INSULIN ASPART
     Dosage: UNK
  6. VALTAP [Concomitant]
     Dosage: IN THE MORNING; THE NOTIFICATION WAS GIVEN A DOSE OF 60 MG (PROBABLY BY MISTAKE).

REACTIONS (28)
  - Pallor [Fatal]
  - Seizure [Fatal]
  - Asthenia [Fatal]
  - Blood pressure increased [Fatal]
  - Areflexia [Fatal]
  - Diarrhoea [Fatal]
  - Unresponsive to stimuli [Fatal]
  - Cardiac arrest [Fatal]
  - Decreased appetite [Fatal]
  - Nausea [Fatal]
  - Vomiting [Fatal]
  - Gaze palsy [Fatal]
  - Urinary retention [Fatal]
  - Cyanosis [Fatal]
  - Peripheral coldness [Fatal]
  - Cardiac arrest [Fatal]
  - Hyperglycaemia [Fatal]
  - Apnoea [Fatal]
  - Pupillary reflex impaired [Fatal]
  - Malaise [Fatal]
  - Dyspnoea [Fatal]
  - Mydriasis [Fatal]
  - Circulatory collapse [Fatal]
  - Body temperature decreased [Fatal]
  - Sticky skin [Fatal]
  - Cold sweat [Fatal]
  - Hypotension [Fatal]
  - Eyelid function disorder [Fatal]

NARRATIVE: CASE EVENT DATE: 20211103
